FAERS Safety Report 5526504-6 (Version None)
Quarter: 2007Q4

REPORT INFORMATION
  Report Type: 
  Country: None (occurrence: None)
  Receive Date: 20071127
  Receipt Date: 20071112
  Transmission Date: 20080405
  Serious: Yes (Hospitalization)
  Sender: FDA-Public Use
  Company Number: GB-AMGEN-UK247602

PATIENT
  Sex: Male

DRUGS (6)
  1. PANITUMUMAB [Suspect]
     Indication: COLORECTAL CANCER
     Route: 041
     Dates: start: 20070726
  2. FLUOROURACIL [Suspect]
     Route: 041
     Dates: start: 20070726
  3. OXALIPLATIN [Suspect]
     Route: 041
     Dates: start: 20070726
  4. POTASSIUM CHLORIDE [Concomitant]
     Route: 048
     Dates: start: 20071011, end: 20071016
  5. POTASSIUM CHLORIDE [Concomitant]
     Route: 041
     Dates: start: 20071011, end: 20071012
  6. SODIUM CHLORIDE [Concomitant]
     Route: 041
     Dates: start: 20071011, end: 20071012

REACTIONS (3)
  - ANOREXIA [None]
  - DIARRHOEA [None]
  - NAUSEA [None]
